FAERS Safety Report 6670698-6 (Version None)
Quarter: 2010Q2

REPORT INFORMATION
  Report Type: 
  Country: None (occurrence: None)
  Receive Date: 20100407
  Receipt Date: 20100330
  Transmission Date: 20101027
  Serious: Yes (Hospitalization)
  Sender: FDA-Public Use
  Company Number: US-NOVOPROD-306343

PATIENT
  Sex: Female
  Weight: 6.91 kg

DRUGS (1)
  1. NORDITROPIN [Suspect]
     Indication: HYPOPITUITARISM
     Dosage: 0.3 MG, QD
     Route: 058
     Dates: start: 20090701

REACTIONS (2)
  - DRUG DOSE OMISSION [None]
  - HYPOGLYCAEMIC UNCONSCIOUSNESS [None]
